FAERS Safety Report 7645387-1 (Version None)
Quarter: 2011Q3

REPORT INFORMATION
  Report Type: 
  Country: None (occurrence: None)
  Receive Date: 20110729
  Receipt Date: 20110726
  Transmission Date: 20111222
  Serious: Yes (Death)
  Sender: FDA-Public Use
  Company Number: US-ABBOTT-11P-163-0841740-00

PATIENT
  Sex: Female

DRUGS (17)
  1. AMITRIPTYLINE HCL [Concomitant]
     Indication: DEPRESSION
  2. ALDACTONE [Concomitant]
     Indication: HYPERTENSION
  3. LIPITOR [Concomitant]
     Indication: BLOOD CHOLESTEROL INCREASED
  4. VITRON C [Concomitant]
     Indication: VITAMIN SUPPLEMENTATION
  5. POTASSIUM CHLORIDE [Concomitant]
     Indication: MINERAL SUPPLEMENTATION
     Dosage: 10 MEQ
  6. LASIX [Concomitant]
     Indication: FLUID RETENTION
  7. VITAMIN D [Concomitant]
     Indication: VITAMIN SUPPLEMENTATION
  8. NEXIUM [Concomitant]
     Indication: GASTROOESOPHAGEAL REFLUX DISEASE
  9. PROBENECID [Concomitant]
     Indication: ARTHRITIS
  10. TOPROL-XL [Concomitant]
     Indication: HYPERTENSION
  11. VITRON C [Concomitant]
     Indication: MINERAL SUPPLEMENTATION
  12. DESLORATADINE [Concomitant]
     Indication: ALLERGIC SINUSITIS
  13. AVAPRO [Concomitant]
     Indication: HYPERTENSION
  14. NITROGLYCERIN [Concomitant]
     Indication: CARDIAC DISORDER
  15. WARFARIN SODIUM [Concomitant]
     Indication: ANTICOAGULANT THERAPY
  16. HUMIRA [Suspect]
     Indication: PSORIATIC ARTHROPATHY
     Route: 058
     Dates: start: 20090819
  17. LEFLUNOMIDE [Concomitant]
     Indication: RHEUMATOID ARTHRITIS

REACTIONS (1)
  - DEATH [None]
